FAERS Safety Report 22388820 (Version 2)
Quarter: 2023Q2

REPORT INFORMATION
  Report Type: Spontaneous
  Country: US (occurrence: US)
  Receive Date: 20230531
  Receipt Date: 20230607
  Transmission Date: 20230721
  Serious: Yes (Other)
  Sender: FDA-Public Use
  Company Number: US-MYLANLABS-2023M1054314

PATIENT
  Age: 45 Year
  Sex: Female

DRUGS (7)
  1. GABAPENTIN [Suspect]
     Active Substance: GABAPENTIN
     Indication: Back pain
     Dosage: 1800 MG, DAILY (600MG IN THE MORNING AND 1200MG IN THE EVENING)
     Route: 065
     Dates: start: 2010
  2. BUPRENORPHINE [Suspect]
     Active Substance: BUPRENORPHINE
     Indication: Back pain
     Dosage: 8 MG (8 MILLIGRAM, 2-2.5 PILLS A DAY)
     Route: 065
  3. TRAZODONE [Suspect]
     Active Substance: TRAZODONE HYDROCHLORIDE
     Indication: Insomnia
     Dosage: UNK
     Route: 065
  4. BUPROPION [Suspect]
     Active Substance: BUPROPION
     Indication: Major depression
     Dosage: 100 MG, 3X/DAY
     Route: 065
     Dates: start: 2008, end: 202010
  5. BUPROPION [Suspect]
     Active Substance: BUPROPION
     Indication: Nicotine dependence
     Dosage: 450 MG, 1X/DAY
     Route: 065
     Dates: start: 202010
  6. BUPROPION [Suspect]
     Active Substance: BUPROPION
     Indication: Parasomnia
  7. HYDROCODONE [Suspect]
     Active Substance: HYDROCODONE
     Indication: Back pain
     Dosage: 10 MG, 4X/DAY (10 MILLIGRAM, QID, 4 TIMES A DAY(ACTION TAKEN: THERAPY COMPLETED PRIOR TO ADR ONSET))
     Route: 065
     Dates: start: 2002, end: 2016

REACTIONS (3)
  - Restless legs syndrome [Unknown]
  - Symptom masked [Unknown]
  - Off label use [Unknown]
